FAERS Safety Report 5287836-2 (Version None)
Quarter: 2007Q2

REPORT INFORMATION
  Report Type: 
  Country: None (occurrence: None)
  Receive Date: 20070403
  Receipt Date: 20070403
  Transmission Date: 20071010
  Serious: Yes (Other)
  Sender: FDA-Public Use
  Company Number: None

PATIENT
  Sex: Female

DRUGS (1)
  1. HYDROGEN PEROXIDE SOLUTION [Suspect]
     Indication: DENTAL CLEANING
     Dosage: DENTAL
     Route: 004
     Dates: start: 20070201, end: 20070201

REACTIONS (4)
  - APPLICATION SITE NECROSIS [None]
  - CAUSTIC INJURY [None]
  - GINGIVAL DISORDER [None]
  - TOOTH DISCOLOURATION [None]
